FAERS Safety Report 5637510-5 (Version None)
Quarter: 2008Q1

REPORT INFORMATION
  Report Type: 
  Country: None (occurrence: None)
  Receive Date: 20080225
  Receipt Date: 20080212
  Transmission Date: 20080703
  Serious: Yes (Disabling)
  Sender: FDA-Public Use
  Company Number: JP-GENENTECH-252936

PATIENT
  Sex: Female

DRUGS (5)
  1. BEVACIZUMAB [Suspect]
     Indication: COLON CANCER
     Dosage: 5 MG/KG, QD
     Route: 042
     Dates: start: 20070919, end: 20070919
  2. IRINOTECAN [Suspect]
     Indication: COLON CANCER
     Dosage: 180 MG/M2, QD
     Route: 042
     Dates: start: 20070919, end: 20070919
  3. FLUOROURACIL [Suspect]
     Indication: COLON CANCER
     Dosage: 475 MG/M2, QD
     Route: 042
     Dates: start: 20070919, end: 20070921
  4. ISOVORIN [Suspect]
     Indication: COLON CANCER
     Dosage: 225 MG/M2, QD
     Route: 042
     Dates: start: 20070919, end: 20070919
  5. PARIET [Concomitant]
     Indication: REFLUX OESOPHAGITIS
     Dosage: UNK, UNK
     Dates: start: 20070923, end: 20071106

REACTIONS (3)
  - ANAEMIA [None]
  - NEUTROPHIL COUNT DECREASED [None]
  - PLATELET COUNT DECREASED [None]
